FAERS Safety Report 8731237 (Version 2)
Quarter: 2012Q4

REPORT INFORMATION
  Report Type: 
  Country: US (occurrence: US)
  Receive Date: 20120820
  Receipt Date: 20120910
  Transmission Date: 20130627
  Serious: No
  Sender: FDA-Public Use
  Company Number: US-PFIZER INC-2012201902

PATIENT
  Age: 77 Year
  Sex: Female

DRUGS (2)
  1. PRISTIQ [Suspect]
     Indication: DEPRESSION
     Dosage: 50 mg, daily
     Dates: start: 201208, end: 2012
  2. PRISTIQ [Suspect]
     Dosage: UNK
     Dates: start: 2012

REACTIONS (5)
  - Abnormal dreams [Not Recovered/Not Resolved]
  - Constipation [Not Recovered/Not Resolved]
  - Tinnitus [Unknown]
  - Headache [Unknown]
  - Feeling abnormal [Unknown]
